FAERS Safety Report 4523506-3 (Version None)
Quarter: 2004Q4

REPORT INFORMATION
  Report Type: 
  Country: None (occurrence: None)
  Receive Date: 20041209
  Receipt Date: 20041209
  Transmission Date: 20050328
  Serious: Yes (Other)
  Sender: FDA-Public Use
  Company Number: None

PATIENT
  Age: 68 Year
  Sex: Female
  Weight: 57.1532 kg

DRUGS (1)
  1. ZOMETA [Suspect]
     Dosage: IV DOSE FREQ :?
     Route: 042

REACTIONS (2)
  - IMPAIRED HEALING [None]
  - OSTEONECROSIS [None]
